FAERS Safety Report 25336509 (Version 1)
Quarter: 2025Q2

REPORT INFORMATION
  Report Type: Report from Study
  Country: JP (occurrence: JP)
  Receive Date: 20250520
  Receipt Date: 20250520
  Transmission Date: 20250716
  Serious: Yes (Hospitalization)
  Sender: BOEHRINGER INGELHEIM
  Company Number: JP-CMIC11990387-01008008

PATIENT
  Age: 43 Year
  Sex: Male
  Weight: 67.0 kg

DRUGS (21)
  1. OFEV [Suspect]
     Active Substance: NINTEDANIB
     Indication: Systemic scleroderma
     Dates: start: 20231122, end: 20250305
  2. OFEV [Suspect]
     Active Substance: NINTEDANIB
     Indication: Interstitial lung disease
  3. PREDNISOLONE [Suspect]
     Active Substance: PREDNISOLONE
     Indication: Systemic scleroderma
     Dates: end: 20231206
  4. PREDNISOLONE [Suspect]
     Active Substance: PREDNISOLONE
     Indication: Interstitial lung disease
     Dates: start: 20231207, end: 20231220
  5. PREDNISOLONE [Suspect]
     Active Substance: PREDNISOLONE
     Dates: start: 20231221, end: 20240111
  6. PREDNISOLONE [Suspect]
     Active Substance: PREDNISOLONE
     Dates: start: 20240112, end: 20240207
  7. PREDNISOLONE [Suspect]
     Active Substance: PREDNISOLONE
     Dates: start: 20240208, end: 20240306
  8. PREDNISOLONE [Suspect]
     Active Substance: PREDNISOLONE
     Dates: start: 20240307, end: 20240528
  9. PREDNISOLONE [Suspect]
     Active Substance: PREDNISOLONE
     Dates: start: 20240530, end: 20240703
  10. PREDNISOLONE [Suspect]
     Active Substance: PREDNISOLONE
     Dates: start: 20240704, end: 20240807
  11. PREDNISOLONE [Suspect]
     Active Substance: PREDNISOLONE
     Dates: start: 20240808, end: 20240911
  12. PREDNISOLONE [Suspect]
     Active Substance: PREDNISOLONE
     Dates: start: 20240912
  13. CELLCEPT [Concomitant]
     Active Substance: MYCOPHENOLATE MOFETIL
     Indication: Systemic scleroderma
  14. CELLCEPT [Concomitant]
     Active Substance: MYCOPHENOLATE MOFETIL
     Indication: Interstitial lung disease
  15. SULFAMETHOXAZOLE\TRIMETHOPRIM [Concomitant]
     Active Substance: SULFAMETHOXAZOLE\TRIMETHOPRIM
     Indication: Prophylaxis
  16. ESOMEPRAZOLE [Concomitant]
     Active Substance: ESOMEPRAZOLE
     Indication: Prophylaxis
  17. ELDECALCITOL [Concomitant]
     Active Substance: ELDECALCITOL
     Indication: Prophylaxis
  18. FOSAMAC 35MG [Concomitant]
     Indication: Prophylaxis
     Dates: start: 20231220
  19. SARPOGRELATE HYDROCHLORIDE [Concomitant]
     Active Substance: SARPOGRELATE HYDROCHLORIDE
     Indication: Systemic scleroderma
     Dates: start: 20240703
  20. JUVELA [Concomitant]
     Active Substance: .ALPHA.-TOCOPHEROL\RETINOL
     Indication: Systemic scleroderma
     Dates: start: 20240807
  21. LOPEMIN [Concomitant]
     Indication: Prophylaxis
     Dates: start: 20231122

REACTIONS (2)
  - Cerebellar infarction [Recovered/Resolved]
  - Cerebral infarction [Recovered/Resolved]

NARRATIVE: CASE EVENT DATE: 20250305
